FAERS Safety Report 9925572 (Version 1)
Quarter: 2014Q1

REPORT INFORMATION
  Report Type: Spontaneous
  Country: US (occurrence: None)
  Receive Date: 20140225
  Receipt Date: 20140225
  Transmission Date: 20141002
  Serious: Yes (Hospitalization)
  Sender: FDA-Public Use
  Company Number: None

PATIENT
  Age: 70 Year
  Sex: Female
  Weight: 54.1 kg

DRUGS (3)
  1. CARBOPLATIN [Suspect]
  2. PACLITAXEL (TAXOL) [Suspect]
  3. SIMVASTATIN [Concomitant]

REACTIONS (16)
  - Asthenia [None]
  - Dizziness [None]
  - Fall [None]
  - Syncope [None]
  - Urinary incontinence [None]
  - Faecal incontinence [None]
  - Laceration [None]
  - Confusional state [None]
  - Muscle tone disorder [None]
  - Cerebrovascular accident [None]
  - Rhabdomyolysis [None]
  - Troponin increased [None]
  - Thrombocytopenia [None]
  - Pneumonia [None]
  - Arrhythmia [None]
  - Myocardial infarction [None]
